FAERS Safety Report 5321874-6 (Version None)
Quarter: 2007Q2

REPORT INFORMATION
  Report Type: 
  Country: None (occurrence: None)
  Receive Date: 20070510
  Receipt Date: 20070509
  Transmission Date: 20071010
  Serious: Yes (Death)
  Sender: FDA-Public Use
  Company Number: DE-BOEHRINGER INGELHEIM PHARMACEUTICALS, INC.-2007-DE-02693DE

PATIENT
  Sex: Male
  Weight: 69 kg

DRUGS (4)
  1. SIFROL [Suspect]
     Indication: PARKINSONISM
     Route: 048
     Dates: start: 20060321
  2. SIFROL [Suspect]
     Indication: TREMOR
  3. LEVOBETA [Concomitant]
     Indication: PARKINSONISM
     Dosage: LEVODOPA 150 MG/BENSERAZIDE 37.5 MG/DAY
     Dates: start: 20060606
  4. MIRTAZAPINE [Concomitant]
     Indication: DEPRESSION
     Dates: start: 20060117

REACTIONS (1)
  - COMPLETED SUICIDE [None]
